FAERS Safety Report 9005806 (Version 1)
Quarter: 2013Q1

REPORT INFORMATION
  Report Type: Spontaneous
  Country: US (occurrence: US)
  Receive Date: 20130109
  Receipt Date: 20130109
  Transmission Date: 20140127
  Serious: No
  Sender: FDA-Public Use
  Company Number: US-ABBOTT-12P-163-0927026-00

PATIENT
  Sex: Female
  Weight: 71.73 kg

DRUGS (9)
  1. VICODIN [Suspect]
     Indication: PRODUCT USED FOR UNKNOWN INDICATION
     Dates: start: 2001, end: 2008
  2. VITAMIN B12 [Concomitant]
     Indication: ANAEMIA
     Dosage: MONTHLY
     Dates: start: 2002
  3. VITAMIN B12 [Concomitant]
     Dosage: WEEKLY
  4. GABAPENTIN [Concomitant]
     Indication: RHEUMATOID ARTHRITIS
     Dates: start: 2009
  5. GABAPENTIN [Concomitant]
     Indication: SYSTEMIC LUPUS ERYTHEMATOSUS
  6. METFORMIN [Concomitant]
     Indication: DIABETES MELLITUS
     Dates: start: 2009
  7. CLARITIN [Concomitant]
     Indication: HYPERSENSITIVITY
     Dosage: 10 MG DAILY
     Dates: start: 2003
  8. UNSPECIFIED MEDICATIONS [Concomitant]
     Indication: LEUKAEMIA
     Route: 050
  9. UNSPECIFIED MEDICATION [Concomitant]
     Indication: HYPOTENSION
     Dosage: PILLS

REACTIONS (1)
  - Nausea [Recovered/Resolved]
